FAERS Safety Report 4468410-4 (Version None)
Quarter: 2004Q4

REPORT INFORMATION
  Report Type: 
  Country: None (occurrence: None)
  Receive Date: 20041004
  Receipt Date: 20040916
  Transmission Date: 20050328
  Serious: Yes (Other)
  Sender: FDA-Public Use
  Company Number: 430018P04USA

PATIENT
  Age: 39 Year
  Sex: Male
  Weight: 72.3 kg

DRUGS (12)
  1. NOVANTRONE [Suspect]
     Dosage: 9 MG, 1 IN 3 MONTHS, INTRAVENOUS
     Route: 042
     Dates: start: 20020530, end: 20040805
  2. POTASSIUM [Concomitant]
  3. FUROSEMIDE [Concomitant]
  4. VENLAFAXINE HCL [Concomitant]
  5. OXYBUTYNIN [Concomitant]
  6. NITROFURANTOIN [Concomitant]
  7. AMANTADINE HCL [Concomitant]
  8. CETIRIZINE HCL [Concomitant]
  9. ESCITALOPRAM OXALATE [Concomitant]
  10. ATORVASTATIN CALCIUM [Concomitant]
  11. GARLIC [Concomitant]
  12. PROCTOFIBE [Concomitant]

REACTIONS (4)
  - BUNDLE BRANCH BLOCK RIGHT [None]
  - DYSPNOEA EXERTIONAL [None]
  - EJECTION FRACTION DECREASED [None]
  - QRS AXIS ABNORMAL [None]
